FAERS Safety Report 7786031-2 (Version None)
Quarter: 2011Q3

REPORT INFORMATION
  Report Type: 
  Country: None (occurrence: None)
  Receive Date: 20110929
  Receipt Date: 20110919
  Transmission Date: 20111222
  Serious: Yes (Hospitalization)
  Sender: FDA-Public Use
  Company Number: US-BAYER-2011-009786

PATIENT
  Age: 48 Year
  Sex: Female
  Weight: 90.703 kg

DRUGS (9)
  1. ADVAIR DISKUS 100/50 [Concomitant]
     Dosage: UNK
     Dates: start: 20030101
  2. TOPAMAX [Concomitant]
     Dosage: UNK
     Dates: start: 20000101, end: 20090101
  3. SUMATRIPTAN SUCCINATE [Concomitant]
     Dosage: UNK
     Dates: start: 20020101
  4. IMITREX [Concomitant]
     Dosage: UNK
     Dates: start: 20060101
  5. IMITREX [Concomitant]
     Dosage: UNK
     Dates: start: 20090101
  6. SYNTHROID [Concomitant]
     Dosage: UNK
     Dates: start: 20040101, end: 20050101
  7. IBUPROFEN [Concomitant]
     Dosage: UNK
     Dates: start: 20020101, end: 20100101
  8. YAZ [Suspect]
     Indication: PREMENSTRUAL SYNDROME
     Dosage: UNK
     Dates: start: 20070401, end: 20080101
  9. STRATTERA [Concomitant]
     Dosage: UNK
     Dates: start: 20040101, end: 20050101

REACTIONS (6)
  - PAIN [None]
  - PULMONARY EMBOLISM [None]
  - DEEP VEIN THROMBOSIS [None]
  - EMOTIONAL DISTRESS [None]
  - INJURY [None]
  - ANXIETY [None]
